FAERS Safety Report 7502148-1 (Version None)
Quarter: 2011Q2

REPORT INFORMATION
  Report Type: 
  Country: None (occurrence: None)
  Receive Date: 20110523
  Receipt Date: 20110523
  Transmission Date: 20111010
  Serious: Yes (Death, Life-Threatening, Hospitalization)
  Sender: FDA-Public Use
  Company Number: None

PATIENT
  Age: 61 Year
  Sex: Male
  Weight: 91.8 kg

DRUGS (8)
  1. CYCLOPHOSPHAMIDE [Concomitant]
  2. PREDNISONE [Concomitant]
  3. VINCRISTINE [Concomitant]
  4. NEULASTA [Concomitant]
  5. DOXORUBICIN HCL [Concomitant]
  6. RITUXIMAB [Suspect]
     Indication: B-CELL LYMPHOMA
     Dosage: 750 MG Q 21 DAYS IV
     Route: 042
     Dates: start: 20090513
  7. RITUXIMAB [Suspect]
     Indication: B-CELL LYMPHOMA
     Dosage: 750 MG Q 21 DAYS IV
     Route: 042
     Dates: start: 20090401
  8. RITUXIMAB [Suspect]
     Indication: B-CELL LYMPHOMA
     Dosage: 750 MG Q 21 DAYS IV
     Route: 042
     Dates: start: 20090422

REACTIONS (2)
  - HEPATIC FAILURE [None]
  - HEPATITIS B [None]
